FAERS Safety Report 5269615-5 (Version None)
Quarter: 2007Q1

REPORT INFORMATION
  Report Type: 
  Country: None (occurrence: None)
  Receive Date: 20070314
  Receipt Date: 20070302
  Transmission Date: 20070707
  Serious: Yes (Other)
  Sender: FDA-Public Use
  Company Number: FABR-11911

PATIENT
  Age: 28 Year
  Sex: Male
  Weight: 49 kg

DRUGS (9)
  1. FABRAZYME [Suspect]
     Indication: FABRY'S DISEASE
     Dates: start: 20031024
  2. HEMAX [Concomitant]
  3. IRON HYDROXY [Concomitant]
  4. FOLIC ACID [Concomitant]
  5. RANITIDINE [Concomitant]
  6. VITAMIN B COMPLEX CAP [Concomitant]
  7. ATENOLOL [Concomitant]
  8. CAPTOPRIL [Concomitant]
  9. CALCITRIOL [Concomitant]

REACTIONS (3)
  - OEDEMA [None]
  - PRURITUS [None]
  - RASH [None]
